FAERS Safety Report 5872404-1 (Version None)
Quarter: 2008Q3

REPORT INFORMATION
  Report Type: 
  Country: None (occurrence: None)
  Receive Date: 20080905
  Receipt Date: 20080826
  Transmission Date: 20090109
  Serious: Yes (Other)
  Sender: FDA-Public Use
  Company Number: PHEH2008US07611

PATIENT
  Sex: Female

DRUGS (4)
  1. MIACALCIN [Suspect]
     Indication: OSTEOPOROSIS
     Dosage: UNK, UNK
     Route: 045
     Dates: start: 20020101, end: 20020101
  2. PRILOSEC [Suspect]
     Indication: OESOPHAGEAL ULCER
     Dosage: UNK, UNK
  3. FORTEO [Suspect]
     Indication: OSTEOPOROSIS
     Dosage: UNK, UNK
  4. ACTOS [Concomitant]
     Indication: DIABETES MELLITUS
     Dosage: UNK, UNK

REACTIONS (10)
  - BLOOD GLUCOSE INCREASED [None]
  - DIARRHOEA [None]
  - DISEASE PROGRESSION [None]
  - DIZZINESS [None]
  - DYSPEPSIA [None]
  - DYSPHAGIA [None]
  - OESOPHAGEAL ULCER [None]
  - OSTEOPOROSIS [None]
  - PALPITATIONS [None]
  - WEIGHT DECREASED [None]
